FAERS Safety Report 17542583 (Version 2)
Quarter: 2020Q2

REPORT INFORMATION
  Report Type: Spontaneous
  Country: US (occurrence: US)
  Receive Date: 20200315
  Receipt Date: 20200417
  Transmission Date: 20200713
  Serious: No
  Sender: FDA-Public Use
  Company Number: US-ASTRAZENECA-2020SE28779

PATIENT
  Sex: Female

DRUGS (2)
  1. BYDUREON BCISE [Suspect]
     Active Substance: EXENATIDE
     Route: 065
     Dates: start: 20200218
  2. BYDUREON BCISE [Suspect]
     Active Substance: EXENATIDE
     Dosage: 2 MG 4 COUNT
     Route: 058

REACTIONS (3)
  - Product packaging quantity issue [Unknown]
  - Nausea [Unknown]
  - Hot flush [Unknown]
